FAERS Safety Report 18730671 (Version 2)
Quarter: 2021Q1

REPORT INFORMATION
  Report Type: Other
  Country: CN (occurrence: CN)
  Receive Date: 20210112
  Receipt Date: 20210122
  Transmission Date: 20210419
  Serious: Yes (Other)
  Sender: FDA-Public Use
  Company Number: CN-ROCHE-2747864

PATIENT

DRUGS (4)
  1. ALTEPLASE. [Suspect]
     Active Substance: ALTEPLASE
     Dosage: THE REMAINING DOSE WAS PUMPED BY INTRAVENOUS PUMP, AND THE TIME FOR ADMINISTRATION WAS 60 MIN, A MAX
     Route: 042
  2. BUTYLPHTHALIDE AND SODIUM CHLORIDE [Concomitant]
     Active Substance: BUTYLPHTHALIDE
     Indication: CEREBRAL INFARCTION
     Route: 042
  3. BUTYLPHTHALIDE [Concomitant]
     Active Substance: BUTYLPHTHALIDE
     Indication: CEREBRAL INFARCTION
     Route: 048
  4. ALTEPLASE. [Suspect]
     Active Substance: ALTEPLASE
     Indication: CEREBRAL INFARCTION
     Dosage: THE DOSE USED WAS 0.9 MG/KG, AND THE TOTAL VOLUME WAS INTRAVENOUSLY INJECTED FOR 1/10,
     Route: 042

REACTIONS (2)
  - Drug ineffective [Unknown]
  - No adverse event [Unknown]
